FAERS Safety Report 9741489 (Version 1)
Quarter: 2013Q4

REPORT INFORMATION
  Report Type: Spontaneous
  Country: NO (occurrence: NO)
  Receive Date: 20131209
  Receipt Date: 20131209
  Transmission Date: 20140711
  Serious: Yes (Hospitalization, Other)
  Sender: FDA-Public Use
  Company Number: NO-MYLANLABS-2013S1026896

PATIENT
  Age: 90 Year
  Sex: Male

DRUGS (9)
  1. METOPROLOL [Suspect]
     Indication: BLOOD PRESSURE INCREASED
     Route: 048
     Dates: start: 201302
  2. METOPROLOL [Suspect]
     Indication: ANGINA PECTORIS
     Route: 048
     Dates: start: 201302
  3. ALBYL [Concomitant]
     Indication: MYOCARDIAL INFARCTION
     Dosage: STARTED MANY YEARS AGO
     Route: 048
  4. NITROGLYCERINE [Concomitant]
     Indication: ANGINA PECTORIS
     Dosage: STARTED MANY YEARS AGO
  5. ATACAND [Concomitant]
     Indication: BLOOD PRESSURE INCREASED
     Route: 048
     Dates: start: 20131016
  6. SPIRIX [Concomitant]
     Indication: OEDEMA DUE TO CARDIAC DISEASE
     Dosage: STARTED 5 WEEKS AGO
     Route: 048
  7. BURINEX [Concomitant]
     Indication: OEDEMA DUE TO CARDIAC DISEASE
     Dosage: STARTED 3 WEEKS AGO
     Route: 048
  8. NEURONTIN [Concomitant]
     Indication: PAIN IN EXTREMITY
     Dosage: STARTED 3-5 WEEKS AGO
  9. SOMAC [Concomitant]
     Indication: GASTROOESOPHAGEAL REFLUX DISEASE
     Dosage: FOR A FEW WEEKS IN SUMMER 2013
     Dates: start: 2013

REACTIONS (4)
  - Blood pressure fluctuation [Unknown]
  - Myocardial infarction [Unknown]
  - Dizziness [Unknown]
  - Balance disorder [Unknown]
